FAERS Safety Report 9915188 (Version 2)
Quarter: 2014Q2

REPORT INFORMATION
  Report Type: Report from Study
  Country: DE (occurrence: DE)
  Receive Date: 20140220
  Receipt Date: 20140418
  Transmission Date: 20141212
  Serious: Yes (Life-Threatening, Hospitalization, Disabling, Other)
  Sender: FDA-Public Use
  Company Number: DE-ASTRAZENECA-2014SE10779

PATIENT
  Age: 45 Year
  Sex: Male

DRUGS (2)
  1. TICAGRELOR [Suspect]
     Indication: ACUTE CORONARY SYNDROME
     Route: 048
     Dates: start: 20131112
  2. ASPIRIN [Suspect]
     Indication: ACUTE CORONARY SYNDROME
     Route: 048
     Dates: start: 20131112

REACTIONS (3)
  - Cardiogenic shock [Recovered/Resolved with Sequelae]
  - Drug ineffective [Unknown]
  - Acute myocardial infarction [Recovered/Resolved with Sequelae]
